FAERS Safety Report 18533868 (Version 1)
Quarter: 2020Q4

REPORT INFORMATION
  Report Type: Spontaneous
  Country: IN (occurrence: IN)
  Receive Date: 20201123
  Receipt Date: 20201123
  Transmission Date: 20210114
  Serious: Yes (Hospitalization, Other)
  Sender: FDA-Public Use
  Company Number: IN-ENDO PHARMACEUTICALS INC-2020-007347

PATIENT
  Age: 34 Year
  Sex: Female

DRUGS (5)
  1. FLUOXETINE HYDROCHLORIDE. [Suspect]
     Active Substance: FLUOXETINE HYDROCHLORIDE
     Indication: PRODUCT USED FOR UNKNOWN INDICATION
     Dosage: 60 MG, DAILY
     Route: 065
  2. FLUVOXAMINE MALEATE. [Suspect]
     Active Substance: FLUVOXAMINE MALEATE
     Dosage: 200 MG, DAILY
     Route: 065
  3. CLONAZEPAM. [Concomitant]
     Active Substance: CLONAZEPAM
     Indication: INSOMNIA
  4. CLONAZEPAM. [Concomitant]
     Active Substance: CLONAZEPAM
     Indication: ANXIETY
  5. FLUVOXAMINE MALEATE. [Suspect]
     Active Substance: FLUVOXAMINE MALEATE
     Indication: OBSESSIVE-COMPULSIVE DISORDER
     Dosage: UNK UNKNOWN (GRADUALLY WAS INCREASED IN 2 WEEKS)
     Route: 065

REACTIONS (4)
  - Galactorrhoea [Recovered/Resolved]
  - Suicidal ideation [Recovering/Resolving]
  - Drug interaction [Unknown]
  - Depressed mood [Recovering/Resolving]
